FAERS Safety Report 11221699 (Version 3)
Quarter: 2015Q3

REPORT INFORMATION
  Report Type: Spontaneous
  Country: US (occurrence: US)
  Receive Date: 20150626
  Receipt Date: 20150731
  Transmission Date: 20151125
  Serious: Yes (Hospitalization)
  Sender: FDA-Public Use
  Company Number: US-UNITED THERAPEUTICS-UNT-2015-007513

PATIENT
  Age: 52 Year
  Sex: Male
  Weight: 89.8 kg

DRUGS (4)
  1. REMODULIN [Suspect]
     Active Substance: TREPROSTINIL
     Dosage: 0.021 ?G/KG, CONTINUING
     Route: 041
     Dates: start: 20140816
  2. REMODULIN [Suspect]
     Active Substance: TREPROSTINIL
     Indication: PULMONARY HYPERTENSION
     Dosage: 0.021 ?G/KG, CONTINUING
     Route: 041
     Dates: start: 20140803
  3. ADCIRCA [Concomitant]
     Active Substance: TADALAFIL
     Indication: PRODUCT USED FOR UNKNOWN INDICATION
  4. LETAIRIS [Concomitant]
     Active Substance: AMBRISENTAN
     Indication: PRODUCT USED FOR UNKNOWN INDICATION

REACTIONS (3)
  - Hepatic cirrhosis [Not Recovered/Not Resolved]
  - Device related infection [Recovered/Resolved]
  - Device related sepsis [Recovered/Resolved]

NARRATIVE: CASE EVENT DATE: 20150610
